FAERS Safety Report 15258741 (Version 1)
Quarter: 2018Q3

REPORT INFORMATION
  Report Type: Spontaneous
  Country: FR (occurrence: FR)
  Receive Date: 20180809
  Receipt Date: 20180809
  Transmission Date: 20181010
  Serious: Yes (Other)
  Sender: FDA-Public Use
  Company Number: FR-ASTELLAS-2018US035211

PATIENT
  Age: 21 Year
  Sex: Male
  Weight: 51 kg

DRUGS (6)
  1. TACROLIMUS. [Suspect]
     Active Substance: TACROLIMUS
     Indication: RENAL TRANSPLANT
     Dosage: UNK UNK, UNKNOWN FREQ. (DAY 2)
     Route: 065
  2. MYCOPHENOLATE MOFETIL. [Concomitant]
     Active Substance: MYCOPHENOLATE MOFETIL
     Indication: RENAL TRANSPLANT
     Dosage: UNK UNK, UNKNOWN FREQ. (DAY 0)
     Route: 065
  3. VALGANCICLOVIR. [Concomitant]
     Active Substance: VALGANCICLOVIR
     Indication: PROPHYLAXIS
     Dosage: UNK UNK, UNKNOWN FREQ.
     Route: 065
  4. HEPARIN [Concomitant]
     Active Substance: HEPARIN SODIUM
     Indication: PRODUCT USED FOR UNKNOWN INDICATION
     Dosage: UNK UNK, UNKNOWN FREQ.
     Route: 065
  5. ATG                                /00575401/ [Suspect]
     Active Substance: LAPINE T-LYMPHOCYTE IMMUNE GLOBULIN
     Indication: RENAL TRANSPLANT
     Dosage: 100 MG, ONCE DAILY (FROM DAY 0 TO DAY 2)
     Route: 065
  6. ATG                                /00575401/ [Suspect]
     Active Substance: LAPINE T-LYMPHOCYTE IMMUNE GLOBULIN
     Dosage: 50 MG, ONCE DAILY (D3 TO D4)
     Route: 065

REACTIONS (3)
  - Thrombotic thrombocytopenic purpura [Recovering/Resolving]
  - Haematoma [Recovering/Resolving]
  - Haemolytic anaemia [Recovered/Resolved]
